FAERS Safety Report 8114901-4 (Version None)
Quarter: 2012Q1

REPORT INFORMATION
  Report Type: 
  Country: None (occurrence: None)
  Receive Date: 20120206
  Receipt Date: 20120201
  Transmission Date: 20120608
  Serious: No
  Sender: FDA-Public Use
  Company Number: US-TEVA-320829USA

PATIENT
  Sex: Female
  Weight: 49.94 kg

DRUGS (2)
  1. YAZ [Concomitant]
     Indication: CONTRACEPTION
  2. PLAN B ONE-STEP [Suspect]
     Indication: POST COITAL CONTRACEPTION
     Dosage: 1.5 MILLIGRAM;
     Route: 048
     Dates: start: 20120131, end: 20120131

REACTIONS (5)
  - NAUSEA [None]
  - FATIGUE [None]
  - DIARRHOEA [None]
  - CONFUSIONAL STATE [None]
  - DIZZINESS [None]
